FAERS Safety Report 5484791-7 (Version None)
Quarter: 2007Q4

REPORT INFORMATION
  Report Type: 
  Country: None (occurrence: None)
  Receive Date: 20071012
  Receipt Date: 20071002
  Transmission Date: 20080405
  Serious: Yes (Death)
  Sender: FDA-Public Use
  Company Number: SE-PFIZER INC-2007065036

PATIENT
  Sex: Female
  Weight: 64 kg

DRUGS (5)
  1. EPIRUBICIN HYDROCHLORIDE [Suspect]
     Indication: BREAST CANCER METASTATIC
     Route: 042
     Dates: start: 20070523, end: 20070523
  2. PACLITAXEL [Suspect]
     Indication: BREAST CANCER METASTATIC
     Route: 042
     Dates: start: 20070523, end: 20070523
  3. BETAMETHASONE [Concomitant]
     Route: 042
     Dates: start: 20070523, end: 20070523
  4. RANITIDINE HCL [Concomitant]
     Route: 042
     Dates: start: 20070523, end: 20070523
  5. CETIRIZINE HCL [Concomitant]
     Route: 042
     Dates: start: 20070523, end: 20070523

REACTIONS (3)
  - MYOCARDIAL INFARCTION [None]
  - PNEUMONIA [None]
  - SEPTIC SHOCK [None]
